FAERS Safety Report 16159192 (Version 1)
Quarter: 2019Q2

REPORT INFORMATION
  Report Type: Spontaneous
  Country: RO (occurrence: RO)
  Receive Date: 20190404
  Receipt Date: 20190404
  Transmission Date: 20190711
  Serious: Yes (Hospitalization, Other)
  Sender: FDA-Public Use
  Company Number: RO-GLAXOSMITHKLINE-RO2019GSK057576

PATIENT
  Age: 12 Year
  Sex: Female

DRUGS (1)
  1. ZINNAT [Suspect]
     Active Substance: CEFUROXIME AXETIL
     Indication: OTITIS MEDIA ACUTE
     Dosage: 250 MG, UNK
     Dates: start: 20171012

REACTIONS (6)
  - Lip oedema [Unknown]
  - Pruritus [Unknown]
  - Syncope [Unknown]
  - Anaphylactic shock [Unknown]
  - Rash maculo-papular [Unknown]
  - Vomiting [Unknown]
